FAERS Safety Report 5045925-1 (Version None)
Quarter: 2006Q3

REPORT INFORMATION
  Report Type: 
  Country: None (occurrence: None)
  Receive Date: 20060710
  Receipt Date: 20060703
  Transmission Date: 20061208
  Serious: Yes (Life-Threatening, Hospitalization)
  Sender: FDA-Public Use
  Company Number: DE-JNJFOC-20060602240

PATIENT
  Sex: Male
  Weight: 78 kg

DRUGS (5)
  1. LIPRINEL CAP [Suspect]
     Indication: URGE INCONTINENCE
     Route: 048
  2. CAPTOPRIL [Concomitant]
     Route: 048
  3. AMARYL [Concomitant]
     Route: 048
  4. OSYROL [Concomitant]
     Route: 048
  5. CIBACEN [Concomitant]
     Route: 048

REACTIONS (2)
  - DEMENTIA [None]
  - SOMNOLENCE [None]
